FAERS Safety Report 23905072 (Version 1)
Quarter: 2024Q2

REPORT INFORMATION
  Report Type: Spontaneous
  Country: CA (occurrence: None)
  Receive Date: 20240527
  Receipt Date: 20240527
  Transmission Date: 20240716
  Serious: No
  Sender: FDA-Public Use
  Company Number: CA-ROCHE-3016827

PATIENT
  Sex: Female

DRUGS (1)
  1. OCREVUS [Suspect]
     Active Substance: OCRELIZUMAB
     Indication: Multiple sclerosis
     Route: 065

REACTIONS (5)
  - Infusion related reaction [Recovered/Resolved]
  - Bacterial vaginosis [Not Recovered/Not Resolved]
  - Influenza [Unknown]
  - Urinary tract infection [Not Recovered/Not Resolved]
  - Tremor [Unknown]
